FAERS Safety Report 8232707-2 (Version None)
Quarter: 2012Q1

REPORT INFORMATION
  Report Type: 
  Country: None (occurrence: None)
  Receive Date: 20120323
  Receipt Date: 20120320
  Transmission Date: 20120608
  Serious: Yes (Other)
  Sender: FDA-Public Use
  Company Number: PHHY2011BR50912

PATIENT
  Sex: Female
  Weight: 54 kg

DRUGS (6)
  1. WARFARIN SODIUM [Concomitant]
     Dosage: 0.5 DF DAILY
     Route: 048
  2. SIMVASTATIN [Concomitant]
     Indication: BLOOD CHOLESTEROL INCREASED
     Dosage: 20 MG, ONE TABLET DAILY
     Route: 048
  3. DIOVAN HCT [Suspect]
     Indication: HYPERTENSION
     Dosage: 1 DF (160/12.5 MG), DAILY
     Route: 048
     Dates: start: 20110101
  4. CITALOPRAM HYDROBROMIDE [Concomitant]
     Indication: DEPRESSION
     Dosage: 20 MG, ONE TABLET DAILY
     Route: 048
  5. CARDIZEM [Concomitant]
     Indication: HYPERTENSION
     Dosage: 60 MG, ONTE TABLET DAILY
     Route: 048
  6. DIOVAN HCT [Suspect]
     Indication: RENAL DISORDER

REACTIONS (9)
  - CEREBROVASCULAR ACCIDENT [None]
  - MALAISE [None]
  - BLOOD PRESSURE FLUCTUATION [None]
  - GAIT DISTURBANCE [None]
  - DYSKINESIA [None]
  - DIZZINESS [None]
  - FEAR OF FALLING [None]
  - ANXIETY [None]
  - TACHYCARDIA [None]
